FAERS Safety Report 10008703 (Version 1)
Quarter: 2014Q1

REPORT INFORMATION
  Report Type: Spontaneous
  Country: US (occurrence: US)
  Receive Date: 20140312
  Receipt Date: 20140312
  Transmission Date: 20141002
  Serious: No
  Sender: FDA-Public Use
  Company Number: US-INCYTE CORPORATION-2012IN000226

PATIENT
  Age: 73 Year
  Sex: Male

DRUGS (8)
  1. JAKAFI [Suspect]
     Indication: MYELOFIBROSIS
     Dosage: 15 MG, BID
     Route: 048
     Dates: start: 20120111
  2. BENICAR [Concomitant]
     Dosage: 40 MG, QD
  3. FOLIC ACID [Concomitant]
     Dosage: 1 MG, QD
  4. VITAMIN D [Concomitant]
     Dosage: OTC
  5. ASA [Concomitant]
     Dosage: 81 MG, QD
  6. AVODART [Concomitant]
     Dosage: 0.5 MG, QD
  7. TAMSULOSIN [Concomitant]
     Dosage: 4 MG, QD
  8. OMEPRAZOLE [Concomitant]
     Dosage: 20 MG, QD

REACTIONS (3)
  - Back pain [Recovered/Resolved]
  - Nausea [Not Recovered/Not Resolved]
  - Pyrexia [Recovered/Resolved]
